FAERS Safety Report 8235839-8 (Version None)
Quarter: 2012Q1

REPORT INFORMATION
  Report Type: 
  Country: None (occurrence: None)
  Receive Date: 20120326
  Receipt Date: 20120320
  Transmission Date: 20120608
  Serious: Yes (Hospitalization)
  Sender: FDA-Public Use
  Company Number: US-ABBOTT-12P-163-0907125-00

PATIENT
  Age: 50 Year
  Sex: Female

DRUGS (3)
  1. HUMIRA [Suspect]
     Indication: CROHN'S DISEASE
     Dates: start: 20120105
  2. IMURAN [Concomitant]
     Indication: CROHN'S DISEASE
     Dosage: DAILY
  3. HUMIRA [Suspect]

REACTIONS (2)
  - PYREXIA [None]
  - DEHYDRATION [None]
